FAERS Safety Report 6633489-8 (Version None)
Quarter: 2010Q1

REPORT INFORMATION
  Report Type: 
  Country: None (occurrence: None)
  Receive Date: 20100312
  Receipt Date: 20090903
  Transmission Date: 20100710
  Serious: No
  Sender: FDA-Public Use
  Company Number: US-ABBOTT-09P-163-0595685-00

PATIENT
  Sex: Female

DRUGS (1)
  1. ERYTHROMYCIN [Suspect]
     Indication: BRONCHIAL DISORDER
     Route: 048
     Dates: start: 20040101, end: 20040101

REACTIONS (1)
  - ABDOMINAL PAIN UPPER [None]
